FAERS Safety Report 9825072 (Version 1)
Quarter: 2013Q4

REPORT INFORMATION
  Report Type: Spontaneous
  Country: US (occurrence: None)
  Receive Date: 20131223
  Receipt Date: 20131223
  Transmission Date: 20140711
  Serious: Yes (Other)
  Sender: FDA-Public Use
  Company Number: 217566LEO

PATIENT
  Sex: Female
  Weight: 60 kg

DRUGS (4)
  1. PICATO [Suspect]
     Indication: ACTINIC KERATOSIS
     Dosage: 1 IN 1 D
     Route: 061
     Dates: start: 20120410, end: 20120410
  2. AMLODIPINE [Concomitant]
  3. DICLOFENAC [Concomitant]
  4. CLARINEX [Concomitant]

REACTIONS (5)
  - Application site swelling [None]
  - Application site vesicles [None]
  - Application site pain [None]
  - Nasopharyngitis [None]
  - Drug dispensing error [None]
